FAERS Safety Report 7607261-6 (Version None)
Quarter: 2011Q3

REPORT INFORMATION
  Report Type: 
  Country: None (occurrence: None)
  Receive Date: 20110713
  Receipt Date: 20110707
  Transmission Date: 20111222
  Serious: No
  Sender: FDA-Public Use
  Company Number: BR-PFIZER INC-2011112966

PATIENT
  Age: 36 Year
  Sex: Male
  Weight: 58.5 kg

DRUGS (3)
  1. LONITEN [Suspect]
     Indication: BLOOD PRESSURE INCREASED
     Dosage: UNK
     Route: 048
     Dates: start: 20060101
  2. LONITEN [Suspect]
     Indication: HYPERTENSION
  3. PROPRANOLOL [Concomitant]
     Dosage: UNK
     Dates: start: 20060101

REACTIONS (2)
  - INAPPROPRIATE SCHEDULE OF DRUG ADMINISTRATION [None]
  - EXPIRED DRUG ADMINISTERED [None]
